FAERS Safety Report 6312869-4 (Version None)
Quarter: 2009Q3

REPORT INFORMATION
  Report Type: 
  Country: None (occurrence: None)
  Receive Date: 20090818
  Receipt Date: 20090810
  Transmission Date: 20100115
  Serious: Yes (Other)
  Sender: FDA-Public Use
  Company Number: DE-JNJFOC-20090803041

PATIENT
  Sex: Female

DRUGS (2)
  1. RISPERDAL [Suspect]
     Indication: DRUG USE FOR UNKNOWN INDICATION
     Dosage: 0-0-1
     Route: 048
  2. CIPRALEX [Concomitant]
     Dosage: 0-0-1
     Route: 065

REACTIONS (4)
  - FATIGUE [None]
  - LISTLESS [None]
  - SLEEP DISORDER [None]
  - SUICIDAL IDEATION [None]
